FAERS Safety Report 6179367-2 (Version None)
Quarter: 2009Q2

REPORT INFORMATION
  Report Type: 
  Country: None (occurrence: None)
  Receive Date: 20090505
  Receipt Date: 20090429
  Transmission Date: 20091009
  Serious: Yes (Life-Threatening, Hospitalization, Other)
  Sender: FDA-Public Use
  Company Number: DE-BRISTOL-MYERS SQUIBB COMPANY-14604805

PATIENT
  Age: 78 Year
  Sex: Male
  Weight: 75 kg

DRUGS (8)
  1. PRAVASTATINE TABS [Suspect]
     Indication: DYSLIPIDAEMIA
     Route: 048
     Dates: start: 20070105
  2. FALITHROM [Interacting]
     Indication: ATRIAL FIBRILLATION
     Dosage: FALITHROM HEXAL FILM COATED TABS
     Route: 048
     Dates: start: 20070105, end: 20080530
  3. DIGITOXIN TAB [Concomitant]
     Indication: TACHYARRHYTHMIA
     Dosage: 1 DF = 0.07 UNITS NOT SPECIFIED TAB FORM
     Route: 048
     Dates: start: 20070105
  4. DIOVAN [Concomitant]
     Indication: HYPERTENSION
     Dosage: DIOVAN NOVARTIS 80 FILM COATED TABLETS 1 DF = 80 UNITS NOT SPECIFIED
     Route: 048
     Dates: start: 20070105
  5. HYDROCHLOROTHIAZIDE [Concomitant]
     Indication: HYPERTENSION
     Dosage: TAB FORM 1 DF= 12.5 UNITS NOT SPECIFIED
     Route: 048
     Dates: start: 20070105
  6. MOLSIDOMINE [Concomitant]
     Indication: CORONARY ARTERY DISEASE
     Dosage: MOLSIDOMINE 8 PROLONGED RELEASE TABLETS 1 DF=8 UNITS NOT SPECIFIED
     Route: 048
     Dates: start: 20070105
  7. NEBILET [Concomitant]
     Indication: HYPERTENSION
     Dosage: 1 DF=2.5 UNITS NOT SPECIFIED BERLIN-CHEMIE AG TAB FORM
     Route: 048
     Dates: start: 20070105
  8. TORSEMIDE [Concomitant]
     Indication: HYPERTENSION
     Dosage: TOREM/GFR 10, BOEHRINGER MANNHEIM GMBH TAB FORM 1 DF=10 UNITS NOT SPECIFIED
     Route: 048
     Dates: start: 20070105

REACTIONS (6)
  - DRUG INTERACTION [None]
  - EPISTAXIS [None]
  - GASTROINTESTINAL HAEMORRHAGE [None]
  - HAEMORRHOIDAL HAEMORRHAGE [None]
  - HYPOTENSION [None]
  - INTERNATIONAL NORMALISED RATIO INCREASED [None]
